FAERS Safety Report 6934782-1 (Version None)
Quarter: 2010Q3

REPORT INFORMATION
  Report Type: 
  Country: None (occurrence: None)
  Receive Date: 20100820
  Receipt Date: 20100805
  Transmission Date: 20110219
  Serious: Yes (Other)
  Sender: FDA-Public Use
  Company Number: PHHY2010FR38000

PATIENT
  Sex: Male
  Weight: 103 kg

DRUGS (2)
  1. RASILEZ HCT [Suspect]
     Indication: HYPERTENSION
     Dosage: 1 DF, QD
     Dates: start: 20100322, end: 20100324
  2. PROCORALAN [Concomitant]
     Indication: SINUS TACHYCARDIA
     Dosage: 05 MG, QD
     Dates: start: 20100301

REACTIONS (6)
  - AGGRESSION [None]
  - AGITATION [None]
  - IRRITABILITY [None]
  - MALAISE [None]
  - NAUSEA [None]
  - SUICIDAL IDEATION [None]
